FAERS Safety Report 14455197 (Version 6)
Quarter: 2018Q2

REPORT INFORMATION
  Report Type: Spontaneous
  Country: FR (occurrence: FR)
  Receive Date: 20180129
  Receipt Date: 20180530
  Transmission Date: 20180711
  Serious: Yes (Hospitalization, Other)
  Sender: FDA-Public Use
  Company Number: FR-PFIZER INC-2018037012

PATIENT
  Age: 76 Year
  Sex: Male
  Weight: 80 kg

DRUGS (9)
  1. BISOPROLOL FUMARATE. [Suspect]
     Active Substance: BISOPROLOL FUMARATE
     Indication: MYOCARDIAL ISCHAEMIA
     Dosage: 2.5 MG, 1X/DAY
     Route: 048
  2. BENSERAZIDE BASE [Suspect]
     Active Substance: BENSERAZIDE
     Dosage: 3 DF, 1X/DAY
     Route: 048
  3. BILASTINE [Suspect]
     Active Substance: BILASTINE
     Dosage: 20 MG, DAILY
     Route: 048
  4. LEVODOPA [Suspect]
     Active Substance: LEVODOPA
     Dosage: 3 DF, 1X/DAY
     Route: 048
  5. TAHOR [Suspect]
     Active Substance: ATORVASTATIN CALCIUM
     Indication: MYOCARDIAL ISCHAEMIA
     Dosage: 20 MG, 1X/DAY
     Route: 048
  6. JANUVIA [Suspect]
     Active Substance: SITAGLIPTIN PHOSPHATE
     Indication: TYPE 2 DIABETES MELLITUS
     Dosage: 1 DF, 1X/DAY
     Route: 048
     Dates: start: 2016, end: 20171230
  7. OMEPRAZOLE. [Suspect]
     Active Substance: OMEPRAZOLE
     Dosage: 20 MG, 1X/DAY
     Route: 048
  8. RAMIPRIL. [Suspect]
     Active Substance: RAMIPRIL
     Indication: HYPERTENSION
     Dosage: 2.5 MG, 1X/DAY
     Route: 048
  9. KARDEGIC [Suspect]
     Active Substance: ASPIRIN DL-LYSINE
     Indication: MYOCARDIAL ISCHAEMIA
     Dosage: DOSE UNKNOWN
     Route: 048

REACTIONS (1)
  - Pemphigoid [Not Recovered/Not Resolved]

NARRATIVE: CASE EVENT DATE: 20171201
